FAERS Safety Report 14987975 (Version 1)
Quarter: 2018Q2

REPORT INFORMATION
  Report Type: Spontaneous
  Country: JP (occurrence: JP)
  Receive Date: 20180608
  Receipt Date: 20180608
  Transmission Date: 20180711
  Serious: Yes (Other)
  Sender: FDA-Public Use
  Company Number: JP-TEVA-2018-JP-904190

PATIENT
  Age: 71 Year
  Sex: Male

DRUGS (6)
  1. FLUOROMETHOLONE. [Suspect]
     Active Substance: FLUOROMETHOLONE
     Indication: NECROTISING SCLERITIS
     Route: 061
  2. BETAMETHASONE. [Suspect]
     Active Substance: BETAMETHASONE
     Indication: NECROTISING SCLERITIS
     Route: 048
  3. MYCOPHENOLATE MOFETIL. [Suspect]
     Active Substance: MYCOPHENOLATE MOFETIL
     Indication: NECROTISING SCLERITIS
     Route: 065
  4. INFLIXIMAB [Suspect]
     Active Substance: INFLIXIMAB
     Indication: NECROTISING SCLERITIS
     Dosage: AT 0, 2 AND 6 WEEKS, THEN ONCE EVERY 8 WEEKS
     Route: 042
  5. BETAMETHASONE. [Suspect]
     Active Substance: BETAMETHASONE
     Indication: NECROTISING SCLERITIS
     Route: 061
  6. INFLIXIMAB [Suspect]
     Active Substance: INFLIXIMAB
     Indication: NECROTISING SCLERITIS
     Route: 042

REACTIONS (3)
  - Necrotising scleritis [Recovering/Resolving]
  - Mycotic endophthalmitis [Recovering/Resolving]
  - Condition aggravated [Recovering/Resolving]
